FAERS Safety Report 7647639-8 (Version None)
Quarter: 2011Q3

REPORT INFORMATION
  Report Type: 
  Country: None (occurrence: None)
  Receive Date: 20110801
  Receipt Date: 20110801
  Transmission Date: 20111222
  Serious: No
  Sender: FDA-Public Use
  Company Number: None

PATIENT
  Age: 76 Year
  Sex: Male
  Weight: 90.718 kg

DRUGS (1)
  1. REGLAN [Suspect]
     Indication: IMPAIRED GASTRIC EMPTYING
     Route: 048
     Dates: start: 20060123, end: 20110101

REACTIONS (1)
  - TARDIVE DYSKINESIA [None]
